FAERS Safety Report 5428654-1 (Version None)
Quarter: 2007Q3

REPORT INFORMATION
  Report Type: 
  Country: None (occurrence: None)
  Receive Date: 20070828
  Receipt Date: 20070821
  Transmission Date: 20080115
  Serious: Yes (Other)
  Sender: FDA-Public Use
  Company Number: US-SHR-US-2007-030591

PATIENT
  Age: 86 Year
  Sex: Female
  Weight: 43 kg

DRUGS (5)
  1. BETAPACE [Suspect]
     Indication: ATRIAL FIBRILLATION
     Dosage: 80 MG, UNK
     Route: 048
  2. BETAPACE [Suspect]
     Dates: start: 20010101
  3. MAGNESIUM SULFATE [Concomitant]
     Dosage: 400 MG, 2X/DAY
  4. MULTIVITAMIN [Concomitant]
  5. GADOLINIUM EOB-DTPA INJECTION [Concomitant]

REACTIONS (12)
  - ASTHENIA [None]
  - DECREASED APPETITE [None]
  - DEPRESSION [None]
  - DYSPHAGIA [None]
  - HEADACHE [None]
  - MEDICATION ERROR [None]
  - NAUSEA [None]
  - PALPITATIONS [None]
  - PERICARDIAL EFFUSION [None]
  - PLEURAL EFFUSION [None]
  - SOMNOLENCE [None]
  - WEIGHT DECREASED [None]
